FAERS Safety Report 17573369 (Version 2)
Quarter: 2020Q1

REPORT INFORMATION
  Report Type: Spontaneous
  Country: CN (occurrence: CN)
  Receive Date: 20200323
  Receipt Date: 20200327
  Transmission Date: 20200409
  Serious: Yes (Other)
  Sender: FDA-Public Use
  Company Number: CN-PFIZER INC-2020122919

PATIENT
  Age: 62 Year
  Sex: Male
  Weight: 56 kg

DRUGS (1)
  1. CYTOSAR [Suspect]
     Active Substance: CYTARABINE
     Indication: THERAPEUTIC PROCEDURE
     Dosage: 3 G, 2X/DAY
     Route: 041
     Dates: start: 20200207, end: 20200208

REACTIONS (1)
  - Bone marrow failure [Recovered/Resolved]

NARRATIVE: CASE EVENT DATE: 20200214
